FAERS Safety Report 21898492 (Version 2)
Quarter: 2023Q1

REPORT INFORMATION
  Report Type: Spontaneous
  Country: US (occurrence: US)
  Receive Date: 20230123
  Receipt Date: 20230130
  Transmission Date: 20230417
  Serious: Yes (Other)
  Sender: FDA-Public Use
  Company Number: US-TEVA-2023-US-2847902

PATIENT
  Age: 57 Year
  Sex: Female

DRUGS (2)
  1. AJOVY [Suspect]
     Active Substance: FREMANEZUMAB-VFRM
     Indication: Product used for unknown indication
     Dosage: FORM STRENGTH: 225/1.5 MG/ML
     Route: 065
  2. AJOVY [Suspect]
     Active Substance: FREMANEZUMAB-VFRM

REACTIONS (3)
  - Epilepsy [Unknown]
  - COVID-19 [Unknown]
  - Migraine [Unknown]

NARRATIVE: CASE EVENT DATE: 20230101
